FAERS Safety Report 16520158 (Version 1)
Quarter: 2019Q3

REPORT INFORMATION
  Report Type: Spontaneous
  Country: US (occurrence: US)
  Receive Date: 20190702
  Receipt Date: 20190702
  Transmission Date: 20191004
  Serious: No
  Sender: FDA-Public Use
  Company Number: US-TARO-2018TAR00565

PATIENT
  Sex: Female

DRUGS (1)
  1. CLOTRIMAZOLE/BETAMETHASONE DIPROPIONATE CREAM USP 1%/0.05% [Suspect]
     Active Substance: BETAMETHASONE DIPROPIONATE\CLOTRIMAZOLE
     Dosage: UNK, 2X/DAY TO THE AFFECTED AREA
     Route: 061
     Dates: start: 20180626

REACTIONS (2)
  - Application site exfoliation [Unknown]
  - Chemical burn of skin [Unknown]

NARRATIVE: CASE EVENT DATE: 2018
